FAERS Safety Report 6370558-4 (Version None)
Quarter: 2009Q3

REPORT INFORMATION
  Report Type: 
  Country: None (occurrence: None)
  Receive Date: 20090923
  Receipt Date: 20090917
  Transmission Date: 20100115
  Serious: Yes (Hospitalization)
  Sender: FDA-Public Use
  Company Number: A0808500A

PATIENT
  Sex: Female
  Weight: 27 kg

DRUGS (2)
  1. SERETIDE [Suspect]
     Dosage: 2PUFF TWICE PER DAY
     Route: 065
     Dates: start: 20090401
  2. SINGULAIR [Concomitant]
     Dosage: .5TAB PER DAY
     Dates: start: 20090801

REACTIONS (2)
  - ASTHMATIC CRISIS [None]
  - OVERDOSE [None]
